FAERS Safety Report 4280789-5 (Version None)
Quarter: 2004Q1

REPORT INFORMATION
  Report Type: 
  Country: None (occurrence: None)
  Receive Date: 20040128
  Receipt Date: 20040128
  Transmission Date: 20041129
  Serious: Yes (Other)
  Sender: FDA-Public Use
  Company Number: None

PATIENT
  Sex: Female
  Weight: 65.7716 kg

DRUGS (1)
  1. ZOLOFT [Suspect]
     Indication: ANXIETY DISORDER
     Dosage: 1/2 TABLET 1 TIME A D ORAL
     Route: 048
     Dates: start: 20010901, end: 20040127

REACTIONS (2)
  - DIZZINESS [None]
  - PARAESTHESIA [None]
